FAERS Safety Report 8499358-6 (Version None)
Quarter: 2012Q3

REPORT INFORMATION
  Report Type: 
  Country: None (occurrence: None)
  Receive Date: 20120710
  Receipt Date: 20120628
  Transmission Date: 20120928
  Serious: No
  Sender: FDA-Public Use
  Company Number: US-JNJFOC-20120700677

PATIENT
  Sex: Male

DRUGS (5)
  1. CLONAZEPAM [Concomitant]
     Indication: SLEEP DISORDER
     Route: 048
  2. ZETIA [Concomitant]
     Indication: BLOOD CHOLESTEROL ABNORMAL
     Route: 048
  3. DIOVAN [Concomitant]
     Indication: BLOOD PRESSURE
     Route: 048
  4. ASPIRIN [Concomitant]
     Indication: CARDIAC DISORDER
     Route: 048
  5. FENTANYL-100 [Suspect]
     Indication: PAIN
     Route: 062

REACTIONS (2)
  - WRONG TECHNIQUE IN DRUG USAGE PROCESS [None]
  - PRODUCT ADHESION ISSUE [None]
